FAERS Safety Report 23285544 (Version 2)
Quarter: 2024Q1

REPORT INFORMATION
  Report Type: Report from Study
  Country: US (occurrence: US)
  Receive Date: 20231212
  Receipt Date: 20240208
  Transmission Date: 20240409
  Serious: Yes (Other)
  Sender: FDA-Public Use
  Company Number: US-ABBVIE-5437440

PATIENT
  Sex: Female

DRUGS (6)
  1. SKYRIZI [Suspect]
     Active Substance: RISANKIZUMAB-RZAA
     Indication: Crohn^s disease
     Route: 058
     Dates: start: 20230315
  2. SKYRIZI [Suspect]
     Active Substance: RISANKIZUMAB-RZAA
     Dosage: WEEK 12?STRENGTH: 360MG/2.4ML?FIRST ADMINISTRATION DATE: 2023?LAST ADMINISTRATION DATE: 2023
     Route: 058
  3. SKYRIZI [Suspect]
     Active Substance: RISANKIZUMAB-RZAA
     Dosage: STRENGTH: 360MG/2.4ML
     Route: 058
     Dates: start: 2023
  4. SKYRIZI [Suspect]
     Active Substance: RISANKIZUMAB-RZAA
     Indication: Crohn^s disease
     Dosage: TIME INTERVAL: TOTAL: WEEK 0
     Route: 042
     Dates: start: 20230306, end: 20230306
  5. SKYRIZI [Suspect]
     Active Substance: RISANKIZUMAB-RZAA
     Indication: Crohn^s disease
     Dosage: TIME INTERVAL: TOTAL: WEEK 4
     Route: 042
     Dates: start: 20230403, end: 20230403
  6. SKYRIZI [Suspect]
     Active Substance: RISANKIZUMAB-RZAA
     Indication: Crohn^s disease
     Dosage: TIME INTERVAL: TOTAL: WEEK 8
     Route: 042
     Dates: start: 20230501, end: 20230501

REACTIONS (10)
  - Stoma creation [Unknown]
  - Insomnia [Not Recovered/Not Resolved]
  - Abdominal pain [Unknown]
  - Arthralgia [Unknown]
  - Hernia [Unknown]
  - Gastrointestinal sounds abnormal [Unknown]
  - Therapeutic response shortened [Not Recovered/Not Resolved]
  - Fistula discharge [Unknown]
  - Pain [Unknown]
  - Off label use [Not Recovered/Not Resolved]

NARRATIVE: CASE EVENT DATE: 20230101
